FAERS Safety Report 8104508-7 (Version None)
Quarter: 2012Q1

REPORT INFORMATION
  Report Type: 
  Country: None (occurrence: None)
  Receive Date: 20120130
  Receipt Date: 20120118
  Transmission Date: 20120608
  Serious: Yes (Hospitalization, Other)
  Sender: FDA-Public Use
  Company Number: AUR-APL-2011-05553

PATIENT
  Age: 82 Year
  Sex: Female

DRUGS (13)
  1. METFORMIN HCL [Suspect]
     Indication: PRODUCT USED FOR UNKNOWN INDICATION
     Dosage: ORAL
     Route: 048
     Dates: end: 20110808
  2. FUROSEMIDE [Suspect]
     Indication: PRODUCT USED FOR UNKNOWN INDICATION
     Dosage: ORAL
     Route: 048
     Dates: end: 20110808
  3. DOMPERIDONE [Concomitant]
  4. APROVEL (IRBESARTAN) [Concomitant]
  5. CRESTOR [Concomitant]
  6. FERROUS SULFATE TAB [Concomitant]
  7. LANTUS [Concomitant]
  8. ARICEPT [Suspect]
     Indication: PRODUCT USED FOR UNKNOWN INDICATION
     Dosage: 10 MG (10 MG, 1 IN 1 D), ORAL
     Route: 048
     Dates: start: 20110201, end: 20110823
  9. SITAGLIPTIN [Suspect]
     Indication: PRODUCT USED FOR UNKNOWN INDICATION
     Dosage: ORAL
     Route: 048
     Dates: end: 20110808
  10. COUMADIN [Concomitant]
  11. NEXIUM [Suspect]
     Indication: PRODUCT USED FOR UNKNOWN INDICATION
     Dosage: (20 MG, 1 D),
     Dates: end: 20110829
  12. SOTALOL HCL [Concomitant]
  13. STABLON (TIANEPTINE) [Suspect]
     Indication: PRODUCT USED FOR UNKNOWN INDICATION
     Dosage: (25 MG, 1 D), ORAL
     Route: 048
     Dates: start: 20110601, end: 20110829

REACTIONS (2)
  - CHOLELITHIASIS [None]
  - CYTOLYTIC HEPATITIS [None]
